FAERS Safety Report 9663699 (Version 1)
Quarter: 2013Q4

REPORT INFORMATION
  Report Type: Spontaneous
  Country: BR (occurrence: BR)
  Receive Date: 20131101
  Receipt Date: 20131101
  Transmission Date: 20140711
  Serious: Yes (Death)
  Sender: FDA-Public Use
  Company Number: PHHY2013BR123634

PATIENT
  Sex: 0

DRUGS (1)
  1. ONBREZ [Suspect]

REACTIONS (1)
  - Death [Fatal]
